FAERS Safety Report 11330681 (Version 1)
Quarter: 2015Q3

REPORT INFORMATION
  Report Type: Spontaneous
  Country: US (occurrence: None)
  Receive Date: 20150731
  Receipt Date: 20150731
  Transmission Date: 20151125
  Serious: No
  Sender: FDA-Public Use
  Company Number: None

PATIENT
  Age: 63 Year
  Sex: Female

DRUGS (1)
  1. HARVONI [Suspect]
     Active Substance: LEDIPASVIR\SOFOSBUVIR
     Indication: CHRONIC HEPATITIS C
     Dosage: ONE TABLETS ONCE DAILY PO
     Route: 048
     Dates: start: 20150612

REACTIONS (3)
  - Blood pressure inadequately controlled [None]
  - Headache [None]
  - Blood pressure increased [None]
